FAERS Safety Report 24555497 (Version 3)
Quarter: 2024Q4

REPORT INFORMATION
  Report Type: Spontaneous
  Country: US (occurrence: US)
  Receive Date: 20241028
  Receipt Date: 20241108
  Transmission Date: 20250114
  Serious: Yes (Other)
  Sender: VERTEX
  Company Number: US-VERTEX PHARMACEUTICALS-2024-016673

PATIENT
  Age: 51 Year
  Sex: Male

DRUGS (1)
  1. TRIKAFTA [Suspect]
     Active Substance: ELEXACAFTOR\IVACAFTOR\TEZACAFTOR
     Indication: Cystic fibrosis
     Dosage: 2 TABLETS IN AM, 1 TAB IN PM
     Route: 048
     Dates: start: 202002

REACTIONS (3)
  - Spermatocele [Not Recovered/Not Resolved]
  - Epididymal cyst [Not Recovered/Not Resolved]
  - Hydrocele [Not Recovered/Not Resolved]

NARRATIVE: CASE EVENT DATE: 20200302
